APPROVED DRUG PRODUCT: TETRACAINE HYDROCHLORIDE
Active Ingredient: TETRACAINE HYDROCHLORIDE
Strength: 0.5%
Dosage Form/Route: SOLUTION;OPHTHALMIC
Application: N208135 | Product #001
Applicant: ALCON LABORATORIES LTD
Approved: Feb 29, 2016 | RLD: Yes | RS: Yes | Type: RX